FAERS Safety Report 21596154 (Version 3)
Quarter: 2022Q4

REPORT INFORMATION
  Report Type: Spontaneous
  Country: JP (occurrence: JP)
  Receive Date: 20221115
  Receipt Date: 20221223
  Transmission Date: 20230113
  Serious: Yes (Other)
  Sender: FDA-Public Use
  Company Number: JP-GSKNCCC-Case-01593870_AE-63404

PATIENT

DRUGS (5)
  1. TRELEGY ELLIPTA [Suspect]
     Active Substance: FLUTICASONE FUROATE\UMECLIDINIUM BROMIDE\VILANTEROL TRIFENATATE
     Indication: Asthma
     Dosage: 200 ?G, QD, 1 INHALATION
     Route: 055
     Dates: start: 20220729
  2. TIMOLOL MALEATE\TRAVOPROST [Concomitant]
     Active Substance: TIMOLOL MALEATE\TRAVOPROST
     Indication: Glaucoma
     Dosage: 1 DROP EACH FOR BOTH EYES, QD
     Route: 047
  3. AZOPT OPHTHALMIC SOLUTION [Concomitant]
     Indication: Glaucoma
     Dosage: 1 DROP EACH FOR BOTH EYES, BID
     Route: 047
  4. GLANATEC OPHTHALMIC [Concomitant]
     Indication: Glaucoma
     Dosage: 1 DROP EACH FOR BOTH EYES, BID
     Route: 047
  5. HYALURONATE NA OPHTHALMIC SOLUTION 0.1% [Concomitant]
     Indication: Glaucoma
     Dosage: 1 DROP EACH FOR BOTH EYES, QID
     Route: 047

REACTIONS (3)
  - Cardiac failure [Unknown]
  - Palpitations [Unknown]
  - Oedema [Unknown]

NARRATIVE: CASE EVENT DATE: 20221007
